FAERS Safety Report 15941670 (Version 4)
Quarter: 2019Q1

REPORT INFORMATION
  Report Type: Spontaneous
  Country: ES (occurrence: ES)
  Receive Date: 20190208
  Receipt Date: 20190223
  Transmission Date: 20190417
  Serious: Yes (Other)
  Sender: FDA-Public Use
  Company Number: ES-SEATTLE GENETICS-2019SGN00208

PATIENT
  Age: 21 Year
  Sex: Male
  Weight: 60 kg

DRUGS (3)
  1. ADCETRIS [Suspect]
     Active Substance: BRENTUXIMAB VEDOTIN
     Indication: HODGKIN^S DISEASE NODULAR SCLEROSIS
     Dosage: UNK
     Route: 042
     Dates: start: 20180622, end: 20181102
  2. ESHAP [Suspect]
     Active Substance: CISPLATIN\CYTARABINE\ETOPOSIDE\METHYLPREDNISOLONE (ESHAP)
     Indication: HODGKIN^S DISEASE NODULAR SCLEROSIS
     Dosage: UNK
     Route: 065
     Dates: start: 20180622, end: 20180728
  3. ICE                                /06761101/ [Concomitant]
     Indication: HODGKIN^S DISEASE NODULAR SCLEROSIS
     Dosage: UNK
     Route: 065
     Dates: start: 20180823, end: 20181102

REACTIONS (4)
  - Hodgkin^s disease [Unknown]
  - Neutropenic sepsis [Unknown]
  - Neutropenia [Unknown]
  - Febrile neutropenia [Unknown]
